FAERS Safety Report 25960788 (Version 1)
Quarter: 2025Q4

REPORT INFORMATION
  Report Type: Spontaneous
  Country: EU (occurrence: None)
  Receive Date: 20251027
  Receipt Date: 20251027
  Transmission Date: 20260117
  Serious: Yes (Hospitalization, Other)
  Sender: ENDO
  Company Number: EU-ENDO USA, INC.-2025-001960

PATIENT
  Sex: Male

DRUGS (1)
  1. AVEED [Suspect]
     Active Substance: TESTOSTERONE UNDECANOATE
     Indication: Muscle mass
     Dosage: UNK UNKNOWN, UNKNOWN

REACTIONS (11)
  - Intestinal ischaemia [Unknown]
  - Cardiac ventricular thrombosis [Unknown]
  - Dilated cardiomyopathy [Unknown]
  - Spleen ischaemia [Unknown]
  - Renal ischaemia [Unknown]
  - Mesenteric arterial occlusion [Unknown]
  - Acute coronary syndrome [Unknown]
  - Peripheral artery thrombosis [Unknown]
  - Pneumonia [Unknown]
  - Cardiac failure [Unknown]
  - Drug abuse [Unknown]

NARRATIVE: CASE EVENT DATE: 20190101
